FAERS Safety Report 11690905 (Version 3)
Quarter: 2016Q1

REPORT INFORMATION
  Report Type: Spontaneous
  Country: US (occurrence: US)
  Receive Date: 20151102
  Receipt Date: 20160309
  Transmission Date: 20160525
  Serious: Yes (Death, Hospitalization, Other)
  Sender: FDA-Public Use
  Company Number: US-PFIZER INC-2015367869

PATIENT
  Age: 59 Year
  Sex: Male
  Weight: 41 kg

DRUGS (11)
  1. ZANTAC [Concomitant]
     Active Substance: RANITIDINE HYDROCHLORIDE
     Indication: DYSPEPSIA
     Dosage: UNK
  2. DILANTIN [Suspect]
     Active Substance: PHENYTOIN
     Indication: SEIZURE
  3. SYMBICORT [Concomitant]
     Active Substance: BUDESONIDE\FORMOTEROL FUMARATE DIHYDRATE
     Dosage: [BUDESONIDE 160MCG/FORMOTEROL FUMARATE 4.5MCG] 2 DF, 2X/DAY
     Route: 055
  4. CENTRUM SILVER [Concomitant]
     Active Substance: MINERALS\VITAMINS
     Dosage: 1 DF, 1X/DAY
  5. MUCINEX DM [Concomitant]
     Active Substance: DEXTROMETHORPHAN HYDROBROMIDE\GUAIFENESIN
     Indication: FACIAL BONES FRACTURE
  6. ALEVE D COLD AND SINUS [Concomitant]
     Dosage: UNK
  7. AFRIN SEVERE CONGESTION [Concomitant]
     Active Substance: OXYMETAZOLINE HYDROCHLORIDE
     Dosage: TWO OR THREE SPRAYS ON EACH SIDE OF NOSE TEN OR TWELEVE HOURS APART, AS NEEDED
     Route: 045
  8. DILANTIN [Suspect]
     Active Substance: PHENYTOIN
     Indication: EPILEPSY
     Dosage: 100 MG, 3X/DAY
     Dates: start: 1969, end: 20151026
  9. MUCINEX DM [Concomitant]
     Active Substance: DEXTROMETHORPHAN HYDROBROMIDE\GUAIFENESIN
     Indication: HYPERSENSITIVITY
  10. OXYGEN. [Concomitant]
     Active Substance: OXYGEN
     Dosage: UNK
  11. MUCINEX DM [Concomitant]
     Active Substance: DEXTROMETHORPHAN HYDROBROMIDE\GUAIFENESIN
     Indication: NASAL CONGESTION
     Dosage: 1 OR 2 TABLETS AS NEEDED EVERY TWELVE HOURS

REACTIONS (9)
  - Chronic obstructive pulmonary disease [Fatal]
  - Weight decreased [Unknown]
  - Condition aggravated [Unknown]
  - Condition aggravated [Fatal]
  - Failure to thrive [Unknown]
  - Chronic obstructive pulmonary disease [Unknown]
  - Chronic obstructive pulmonary disease [Unknown]
  - Condition aggravated [Unknown]
  - Chronic obstructive pulmonary disease [Unknown]

NARRATIVE: CASE EVENT DATE: 2011
